FAERS Safety Report 5230494-3 (Version None)
Quarter: 2007Q1

REPORT INFORMATION
  Report Type: 
  Country: None (occurrence: None)
  Receive Date: 20070206
  Receipt Date: 20070125
  Transmission Date: 20070707
  Serious: Yes (Other)
  Sender: FDA-Public Use
  Company Number: PHBS2007JP00965

PATIENT
  Age: 60 Year
  Sex: Female

DRUGS (5)
  1. ZOMETA [Suspect]
     Indication: METASTASES TO BONE
     Dosage: 4 MG, ONCE/SINGLE
     Route: 042
     Dates: start: 20060519, end: 20060519
  2. ZOMETA [Suspect]
     Dosage: 4 MG, ONCE/SINGLE
     Route: 042
     Dates: start: 20060801, end: 20060801
  3. ZOMETA [Suspect]
     Dosage: 4 MG, MONTHLY
     Route: 042
     Dates: start: 20061001, end: 20061215
  4. HERCEPTIN [Concomitant]
     Indication: METASTASES TO BONE
     Dosage: 2 MG, UNK
     Route: 042
  5. AREDIA [Suspect]
     Dosage: 30 MG, UNK
     Route: 042
     Dates: start: 20041001, end: 20060401

REACTIONS (4)
  - BONE DISORDER [None]
  - DENTAL CARIES [None]
  - GENERAL PHYSICAL CONDITION ABNORMAL [None]
  - IMPAIRED HEALING [None]
